FAERS Safety Report 20539107 (Version 1)
Quarter: 2022Q1

REPORT INFORMATION
  Report Type: Spontaneous
  Country: AU (occurrence: AU)
  Receive Date: 20220302
  Receipt Date: 20220302
  Transmission Date: 20220423
  Serious: Yes (Death, Other)
  Sender: FDA-Public Use
  Company Number: AU-JNJFOC-20210917092

PATIENT
  Age: 67 Year
  Sex: Male

DRUGS (5)
  1. DARATUMUMAB [Suspect]
     Active Substance: DARATUMUMAB
     Indication: Plasma cell myeloma
     Dosage: PATIENT RECEIVED THREE CYCLES OF DARATUMUMAB
     Route: 065
     Dates: start: 201711, end: 201802
  2. KYPROLIS [Suspect]
     Active Substance: CARFILZOMIB
     Indication: Plasma cell myeloma
     Dosage: THE PATIENT RECEIVED APPROXIMATELY 15 CYCLES OF KYPROLIS
     Route: 065
     Dates: start: 201602, end: 201707
  3. MELPHALAN [Suspect]
     Active Substance: MELPHALAN
     Indication: Plasma cell myeloma
     Route: 065
     Dates: start: 2017
  4. PREDNISONE [Suspect]
     Active Substance: PREDNISONE
     Indication: Plasma cell myeloma
     Route: 065
     Dates: start: 2017
  5. THALIDOMIDE [Suspect]
     Active Substance: THALIDOMIDE
     Indication: Plasma cell myeloma
     Route: 065
     Dates: start: 2017

REACTIONS (8)
  - Death [Fatal]
  - Renal impairment [Unknown]
  - Plasma cell myeloma [Unknown]
  - Oropharyngeal pain [Unknown]
  - Localised infection [Unknown]
  - Anaemia [Unknown]
  - Lethargy [Unknown]
  - Pyrexia [Unknown]

NARRATIVE: CASE EVENT DATE: 20170801
